FAERS Safety Report 7332152-8 (Version None)
Quarter: 2011Q1

REPORT INFORMATION
  Report Type: 
  Country: None (occurrence: None)
  Receive Date: 20110304
  Receipt Date: 20110228
  Transmission Date: 20110831
  Serious: Yes (Death, Other)
  Sender: FDA-Public Use
  Company Number: PHHY2010JP57613

PATIENT
  Sex: Male

DRUGS (4)
  1. LANIRAPID [Concomitant]
     Dosage: 0.1 MG, QD
     Route: 048
  2. DIOVAN [Suspect]
     Indication: HYPERTENSION
     Dosage: 80 MG, QD
     Route: 048
     Dates: start: 20080728
  3. FLUITRAN [Concomitant]
     Dosage: 4 MG, QD
  4. NORVASC [Concomitant]
     Dosage: 5 MG, QD
     Route: 048
     Dates: start: 20070801

REACTIONS (2)
  - BLOOD PRESSURE DIASTOLIC DECREASED [None]
  - DEATH [None]
